FAERS Safety Report 5907834-2 (Version None)
Quarter: 2008Q4

REPORT INFORMATION
  Report Type: 
  Country: None (occurrence: None)
  Receive Date: 20081003
  Receipt Date: 20080929
  Transmission Date: 20090506
  Serious: Yes (Hospitalization, Other)
  Sender: FDA-Public Use
  Company Number: CA-ABBOTT-08P-028-0479020-00

PATIENT
  Sex: Female
  Weight: 99.88 kg

DRUGS (6)
  1. HUMIRA [Suspect]
     Indication: CROHN'S DISEASE
     Dosage: 160 MG, INITIAL DOSE
     Route: 058
     Dates: start: 20080821, end: 20080821
  2. HUMIRA [Suspect]
     Route: 058
  3. HUMIRA [Suspect]
     Route: 058
     Dates: end: 20080904
  4. PREDNISONE [Concomitant]
     Indication: DRUG USE FOR UNKNOWN INDICATION
     Dosage: 20 MG DAILY
  5. IRON [Concomitant]
     Indication: DRUG USE FOR UNKNOWN INDICATION
  6. VITAMINS [Concomitant]
     Indication: DRUG USE FOR UNKNOWN INDICATION

REACTIONS (3)
  - INTESTINAL PERFORATION [None]
  - PERITONITIS [None]
  - PNEUMONIA ASPIRATION [None]
